FAERS Safety Report 4774478-8 (Version None)
Quarter: 2005Q3

REPORT INFORMATION
  Report Type: 
  Country: None (occurrence: None)
  Receive Date: 20050914
  Receipt Date: 20041110
  Transmission Date: 20060218
  Serious: Yes (Hospitalization)
  Sender: FDA-Public Use
  Company Number: 163-20785-04110254

PATIENT
  Age: 74 Year
  Sex: Male
  Weight: 61.2356 kg

DRUGS (22)
  1. THALOMID [Suspect]
     Indication: MULTIPLE MYELOMA
     Dosage: 100 MG, QHS, ORAL
     Route: 048
     Dates: start: 20040122
  2. VELCADE [Suspect]
     Indication: MULTIPLE MYELOMA
     Dosage: 0.8 MG/M2, ON DAYS 1, 4, 8, AND 11
  3. DEXAMETHASONE [Suspect]
     Indication: MULTIPLE MYELOMA
     Dosage: 20 MG, ON DAYS 1, 2, 4, 5, 8, 9, 11 AND 12
  4. ADRIAMYCIN PFS [Suspect]
     Indication: MULTIPLE MYELOMA
     Dosage: DAILY FOR 12 DAYS,
  5. ITRACONAZOLE [Concomitant]
  6. ACYCLOVIR [Concomitant]
  7. FLUCONAZOLE [Concomitant]
  8. GATIFLOXACIN [Concomitant]
  9. GRANISETRON HCL (GRANISETRON HYDROCHLORIDE) [Concomitant]
  10. INSULIN LISPRO (INSULIN LISPRO) [Concomitant]
  11. SIROLIMUS (SIROLIMUS) (TABLETS) [Concomitant]
  12. ZOLPIDEM TARTRATE [Concomitant]
  13. BACLOFEN (BACLOFEN) (TABLETS) [Concomitant]
  14. DOCUSATE SODIUM (DOCUSATE SODIUM) [Concomitant]
  15. FLUDROCORTISONE ACETATE [Concomitant]
  16. LACTULOSE [Concomitant]
  17. MECLIZINE HYDROCHLORIDE (MECLOZINE HYDROCHLORIDE) [Concomitant]
  18. METOPROLOL TARTRATE (METOPROLOL TARTRATE) (TABLETS) [Concomitant]
  19. SENNA (SENNA) [Concomitant]
  20. MIDODRINE HYDROCHLORIDE (MIDODRINE HYDROCHLORIDE) [Concomitant]
  21. MAGNESIUM SULFATE [Concomitant]
  22. FOLIC ACID [Concomitant]

REACTIONS (5)
  - DIZZINESS [None]
  - HYPOTENSION [None]
  - STAPHYLOCOCCAL BACTERAEMIA [None]
  - STAPHYLOCOCCAL INFECTION [None]
  - VERTIGO [None]
